FAERS Safety Report 9424415 (Version 1)
Quarter: 2013Q3

REPORT INFORMATION
  Report Type: Spontaneous
  Country: US (occurrence: None)
  Receive Date: 20130726
  Receipt Date: 20130726
  Transmission Date: 20140515
  Serious: Yes (Other)
  Sender: FDA-Public Use
  Company Number: None

PATIENT
  Age: 44 Year
  Sex: Female
  Weight: 62.6 kg

DRUGS (2)
  1. BACTRIM DS [Suspect]
     Dosage: ONE TABLET, 2X DAY, PO
     Route: 048
     Dates: start: 20130709, end: 20130711
  2. PREDNISONE [Suspect]
     Indication: HYPERSENSITIVITY
     Dosage: 1 TABLET, 6X DAY, PO
     Route: 048
     Dates: start: 20130711, end: 20130713

REACTIONS (24)
  - Feeling abnormal [None]
  - Urticaria [None]
  - Skin exfoliation [None]
  - Blister [None]
  - Erythema [None]
  - Insomnia [None]
  - Mania [None]
  - Obsessive-compulsive disorder [None]
  - Heart rate increased [None]
  - Hypersensitivity [None]
  - Dyspnoea [None]
  - Panic attack [None]
  - Dermatitis [None]
  - Paraesthesia [None]
  - Vision blurred [None]
  - Pharyngeal oedema [None]
  - Rash generalised [None]
  - Halo vision [None]
  - Nasal oedema [None]
  - Eye swelling [None]
  - Rhinalgia [None]
  - Lip swelling [None]
  - Tongue blistering [None]
  - Drug hypersensitivity [None]
